FAERS Safety Report 5604780-9 (Version None)
Quarter: 2008Q1

REPORT INFORMATION
  Report Type: 
  Country: None (occurrence: None)
  Receive Date: 20080128
  Receipt Date: 20080116
  Transmission Date: 20080703
  Serious: Yes (Disabling, Other)
  Sender: FDA-Public Use
  Company Number: CL-PFIZER INC-2008002242

PATIENT
  Sex: Female
  Weight: 80 kg

DRUGS (7)
  1. LYRICA [Suspect]
     Indication: SJOGREN'S SYNDROME
     Route: 048
     Dates: start: 20071124, end: 20080114
  2. SERTRALINE [Concomitant]
     Route: 048
     Dates: start: 20071208, end: 20071228
  3. MYOLASTAN [Concomitant]
     Route: 048
  4. AMITRIPTYLINE HCL [Concomitant]
     Route: 048
  5. PLAQUINOL [Concomitant]
     Route: 048
  6. ALL OTHER THERAPEUTIC PRODUCTS [Concomitant]
     Route: 048
  7. TENSODOX [Concomitant]
     Route: 048
     Dates: start: 20080111

REACTIONS (11)
  - ACTIVITIES OF DAILY LIVING IMPAIRED [None]
  - DISTURBANCE IN ATTENTION [None]
  - DIZZINESS [None]
  - DYSGRAPHIA [None]
  - FATIGUE [None]
  - GAIT DISTURBANCE [None]
  - MALAISE [None]
  - OEDEMA [None]
  - SOMNOLENCE [None]
  - TREMOR [None]
  - WEIGHT INCREASED [None]
